FAERS Safety Report 12966542 (Version 2)
Quarter: 2017Q2

REPORT INFORMATION
  Report Type: Report from Study
  Country: DZ (occurrence: DZ)
  Receive Date: 20161122
  Receipt Date: 20170421
  Transmission Date: 20170830
  Serious: Yes (Death, Hospitalization)
  Sender: FDA-Public Use
  Company Number: DZ-ELI_LILLY_AND_COMPANY-DZ201611007484

PATIENT
  Age: 46 Year
  Sex: Female
  Weight: 53 kg

DRUGS (8)
  1. FOLINIC ACID [Concomitant]
     Active Substance: LEUCOVORIN
     Indication: COLORECTAL CANCER METASTATIC
     Dosage: 345 MG, EVERY 15 DAYS
     Route: 042
     Dates: start: 20160509, end: 20160511
  2. FOLINIC ACID [Concomitant]
     Active Substance: LEUCOVORIN
     Dosage: 345 MG, EVERY 15 DAYS
     Route: 042
     Dates: start: 20161109, end: 20161111
  3. IRINOTECAN [Suspect]
     Active Substance: IRINOTECAN
     Indication: COLORECTAL CANCER METASTATIC
     Dosage: 345 MG, EVERY 15 DAYS
     Route: 042
     Dates: start: 20160509, end: 20160511
  4. 5-FU                               /00098801/ [Suspect]
     Active Substance: FLUOROURACIL
     Indication: COLORECTAL CANCER METASTATIC
     Dosage: 345 MG, EVERY 15 DAYS
     Route: 042
     Dates: start: 20160509, end: 20160511
  5. IRINOTECAN [Suspect]
     Active Substance: IRINOTECAN
     Dosage: 345 MG, EVERY 15 DAYS
     Route: 042
     Dates: start: 20161109, end: 20161111
  6. CETUXIMAB. [Suspect]
     Active Substance: CETUXIMAB
     Indication: COLORECTAL CANCER METASTATIC
     Dosage: 400 MG/M2, UNKNOWN
     Route: 042
     Dates: start: 20160613
  7. CETUXIMAB. [Suspect]
     Active Substance: CETUXIMAB
     Dosage: 250 MG/M2, UNKNOWN
     Route: 042
  8. 5-FU                               /00098801/ [Suspect]
     Active Substance: FLUOROURACIL
     Dosage: 345 MG, EVERY 15 DAYS
     Route: 042
     Dates: start: 20161109, end: 20161111

REACTIONS (3)
  - Abdominal distension [Fatal]
  - Diarrhoea [Fatal]
  - General physical health deterioration [Fatal]

NARRATIVE: CASE EVENT DATE: 20161113
